FAERS Safety Report 9280905 (Version 1)
Quarter: 2013Q2

REPORT INFORMATION
  Report Type: Spontaneous
  Country: US (occurrence: US)
  Receive Date: 20130509
  Receipt Date: 20130509
  Transmission Date: 20140414
  Serious: No
  Sender: FDA-Public Use
  Company Number: US-009507513-1305USA000733

PATIENT
  Age: 73 Year
  Sex: Female

DRUGS (1)
  1. ZIOPTAN [Suspect]
     Indication: GLAUCOMA
     Dosage: 1 DROP AT NIGHT
     Route: 047
     Dates: start: 20130428, end: 20130430

REACTIONS (1)
  - Lacrimation increased [Recovered/Resolved]
